FAERS Safety Report 5157446-6 (Version None)
Quarter: 2006Q4

REPORT INFORMATION
  Report Type: 
  Country: None (occurrence: None)
  Receive Date: 20061127
  Receipt Date: 20060824
  Transmission Date: 20070319
  Serious: Yes (Other)
  Sender: FDA-Public Use
  Company Number: HR-ELI_LILLY_AND_COMPANY-HR200609003862

PATIENT
  Age: 62 Year
  Sex: Female

DRUGS (5)
  1. EVISTA [Suspect]
     Indication: OSTEOPOROSIS
     Dosage: 60 MG, DAILY (1/D)
     Route: 048
     Dates: start: 20060407, end: 20060515
  2. IRUMED [Concomitant]
  3. ANDOL [Concomitant]
  4. AMLODIPINE [Concomitant]
     Dosage: UNK, UNKNOWN
     Route: 065
  5. OMEGA-3 [Concomitant]

REACTIONS (4)
  - HAEMORRHAGE SUBCUTANEOUS [None]
  - HEADACHE [None]
  - OEDEMA PERIPHERAL [None]
  - PALPITATIONS [None]
